FAERS Safety Report 10361464 (Version 1)
Quarter: 2014Q3

REPORT INFORMATION
  Report Type: Spontaneous
  Country: DK (occurrence: DK)
  Receive Date: 20140805
  Receipt Date: 20140805
  Transmission Date: 20150326
  Serious: Yes (Hospitalization)
  Sender: FDA-Public Use
  Company Number: DK-ROCHE-1444214

PATIENT
  Age: 32 Year
  Sex: Female

DRUGS (2)
  1. DEXAMETHASON [Concomitant]
     Active Substance: DEXAMETHASONE
     Indication: THROMBOCYTOPENIA
     Route: 065
     Dates: start: 20140512, end: 20140515
  2. MABTHERA [Suspect]
     Active Substance: RITUXIMAB
     Indication: THROMBOCYTOPENIA
     Dosage: DOSIS: 375 MG/M2
     Route: 042
     Dates: start: 20140512, end: 20140529

REACTIONS (5)
  - Arthralgia [Unknown]
  - Vasculitis [Unknown]
  - Proteinuria [Unknown]
  - Serum sickness-like reaction [Recovering/Resolving]
  - Weight increased [Unknown]

NARRATIVE: CASE EVENT DATE: 20140516
